FAERS Safety Report 10023043 (Version 3)
Quarter: 2015Q2

REPORT INFORMATION
  Report Type: Spontaneous
  Country: US (occurrence: US)
  Receive Date: 20140319
  Receipt Date: 20150629
  Transmission Date: 20150821
  Serious: Yes (Hospitalization, Disabling, Other)
  Sender: FDA-Public Use
  Company Number: US-SANOFI-AVENTIS-2012SA066443

PATIENT
  Age: 46 Year
  Sex: Female

DRUGS (13)
  1. PLAVIX [Suspect]
     Active Substance: CLOPIDOGREL BISULFATE
     Indication: ACUTE CORONARY SYNDROME
     Route: 048
     Dates: start: 20070806
  2. CHANTIX [Concomitant]
     Active Substance: VARENICLINE TARTRATE
  3. NITROL [Concomitant]
     Active Substance: NITROGLYCERIN
     Dosage: PASTE
  4. RHINOCORT [Concomitant]
     Active Substance: BUDESONIDE
  5. ANTARA [Concomitant]
     Active Substance: FENOFIBRATE
  6. PLAVIX [Suspect]
     Active Substance: CLOPIDOGREL BISULFATE
     Indication: ACUTE CORONARY SYNDROME
     Route: 048
     Dates: end: 20070816
  7. NEXIUM [Concomitant]
     Active Substance: ESOMEPRAZOLE MAGNESIUM
     Dosage: 20 MG
     Route: 042
  8. AMIODARONE [Concomitant]
     Active Substance: AMIODARONE
  9. CRESTOR [Concomitant]
     Active Substance: ROSUVASTATIN CALCIUM
  10. HEPARIN [Concomitant]
     Active Substance: HEPARIN SODIUM
  11. ASPIRIN. [Concomitant]
     Active Substance: ASPIRIN
     Dosage: GRAINS
  12. CARDIZEM [Concomitant]
     Active Substance: DILTIAZEM HYDROCHLORIDE
     Route: 042
  13. ACTOS [Concomitant]
     Active Substance: PIOGLITAZONE HYDROCHLORIDE

REACTIONS (11)
  - Injury [Not Recovered/Not Resolved]
  - Pain [Not Recovered/Not Resolved]
  - Tension [Not Recovered/Not Resolved]
  - Psychological trauma [Not Recovered/Not Resolved]
  - Physical disability [Not Recovered/Not Resolved]
  - Deformity [Not Recovered/Not Resolved]
  - Thrombotic thrombocytopenic purpura [Recovered/Resolved]
  - Anhedonia [Not Recovered/Not Resolved]
  - Loss of employment [Not Recovered/Not Resolved]
  - Economic problem [Not Recovered/Not Resolved]
  - Social problem [Not Recovered/Not Resolved]

NARRATIVE: CASE EVENT DATE: 20070816
